FAERS Safety Report 24417886 (Version 2)
Quarter: 2024Q4

REPORT INFORMATION
  Report Type: Spontaneous
  Country: NZ (occurrence: NZ)
  Receive Date: 20241009
  Receipt Date: 20241016
  Transmission Date: 20250114
  Serious: No
  Sender: MYLAN
  Company Number: NZ-MYLANLABS-2024M1090330

PATIENT
  Sex: Male

DRUGS (1)
  1. CLOZARIL [Suspect]
     Active Substance: CLOZAPINE
     Indication: Schizophrenia
     Dosage: UNK
     Route: 048
     Dates: start: 19960520

REACTIONS (1)
  - Drooling [Unknown]
